FAERS Safety Report 6595300-3 (Version None)
Quarter: 2010Q1

REPORT INFORMATION
  Report Type: 
  Country: None (occurrence: None)
  Receive Date: 20100222
  Receipt Date: 20100218
  Transmission Date: 20100710
  Serious: Yes (Hospitalization)
  Sender: FDA-Public Use
  Company Number: US-BRISTOL-MYERS SQUIBB COMPANY-14983076

PATIENT
  Age: 42 Year
  Sex: Female

DRUGS (26)
  1. DASATINIB [Suspect]
     Indication: COLORECTAL CANCER METASTATIC
     Route: 048
     Dates: start: 20090724, end: 20100217
  2. CETUXIMAB [Suspect]
     Indication: COLORECTAL CANCER METASTATIC
     Dates: start: 20090724, end: 20100217
  3. LEUCOVORIN CALCIUM [Suspect]
     Indication: COLORECTAL CANCER METASTATIC
     Dates: start: 20090724, end: 20100212
  4. FLUOROURACIL [Suspect]
     Indication: COLORECTAL CANCER METASTATIC
     Dates: start: 20090724, end: 20100212
  5. OXALIPLATIN [Suspect]
     Indication: COLORECTAL CANCER METASTATIC
     Dates: start: 20090724, end: 20100212
  6. ALPHA-LIPOIC ACID [Concomitant]
     Dosage: 1 DF :1 TAB
     Route: 048
     Dates: start: 20090101
  7. REMERON [Concomitant]
     Indication: INSOMNIA
     Route: 048
     Dates: start: 20090301
  8. MULTI-VITAMINS [Concomitant]
     Dosage: 1 DF : 1 TAB
     Route: 048
     Dates: start: 20080101
  9. VITAMIN B COMPLEX CAP [Concomitant]
     Dosage: 1 DF : 1 TAB
     Route: 048
     Dates: start: 20090101
  10. COMPAZINE [Concomitant]
     Indication: NAUSEA
     Route: 048
     Dates: start: 20090731
  11. DEXAMETHASONE [Concomitant]
     Indication: PREMEDICATION
     Dosage: DAY 1
     Route: 042
     Dates: start: 20090724
  12. BENADRYL [Concomitant]
     Indication: PREMEDICATION
     Dosage: DAY 1,8
     Route: 042
     Dates: start: 20090724
  13. ALOXI [Concomitant]
     Indication: PREMEDICATION
     Dosage: DAY 1
     Route: 042
     Dates: start: 20090724
  14. NEURONTIN [Concomitant]
     Indication: NEUROPATHY PERIPHERAL
     Route: 048
     Dates: start: 20091030
  15. PROCTOFOAM HC [Concomitant]
     Indication: HAEMORRHOIDS
     Route: 054
     Dates: start: 20091020
  16. NIFEDIPINE [Concomitant]
     Indication: HAEMORRHOIDS
     Route: 054
     Dates: start: 20091023
  17. OPIUM TINCTURE [Concomitant]
     Indication: DIARRHOEA
     Route: 048
     Dates: start: 20091125
  18. LOMOTIL [Concomitant]
     Indication: DIARRHOEA
     Dosage: FREQUENCY: Q6H PRN
     Route: 048
     Dates: start: 20080908
  19. K-DUR [Concomitant]
     Route: 048
     Dates: start: 20100106
  20. METHADONE [Concomitant]
     Indication: PAIN
     Route: 048
     Dates: start: 20100113
  21. LEVSIN [Concomitant]
     Indication: ABDOMINAL PAIN
     Dosage: FREQUENCY: Q8HPRN
     Route: 048
     Dates: start: 20100113
  22. CLONAZEPAM [Concomitant]
     Indication: PSYCHOTIC DISORDER
     Route: 048
     Dates: start: 20100113
  23. CLONAZEPAM [Concomitant]
     Route: 048
     Dates: start: 20100113
  24. TRAZODONE HCL [Concomitant]
     Indication: INSOMNIA
     Route: 048
     Dates: start: 20100113
  25. NORMAL SALINE + POTASSIUM [Concomitant]
     Indication: HYPOKALAEMIA
     Dosage: 1 DF :NORMAL SALINE DOSE: 1 LITRE.POTASSIUM DOSE :40MEQ.
     Route: 042
     Dates: start: 20100203, end: 20100203
  26. ACETAMINOPHEN AND HYDROCODONE BITARTRATE [Concomitant]
     Indication: PAIN
     Dosage: FREQUENCY: Q6H PRN . 1 DF :10/325 UNIT NO SPECIFIED.
     Route: 048
     Dates: start: 20090724

REACTIONS (2)
  - ABDOMINAL PAIN [None]
  - DEPRESSION SUICIDAL [None]
